FAERS Safety Report 5580542-6 (Version None)
Quarter: 2007Q4

REPORT INFORMATION
  Report Type: 
  Country: None (occurrence: None)
  Receive Date: 20071231
  Receipt Date: 20071231
  Transmission Date: 20080405
  Serious: No
  Sender: FDA-Public Use
  Company Number: None

PATIENT
  Sex: Female
  Weight: 66.6788 kg

DRUGS (1)
  1. LEVAQUIN [Suspect]
     Indication: URINARY TRACT INFECTION
     Dosage: 750  1 DAILY  CUTANEOUS
     Route: 003
     Dates: start: 20071222, end: 20071226

REACTIONS (4)
  - ARTHRALGIA [None]
  - ARTHROPATHY [None]
  - GENERAL PHYSICAL HEALTH DETERIORATION [None]
  - PAIN IN EXTREMITY [None]
